FAERS Safety Report 5393464-0 (Version None)
Quarter: 2007Q3

REPORT INFORMATION
  Report Type: 
  Country: None (occurrence: None)
  Receive Date: 20070723
  Receipt Date: 20060608
  Transmission Date: 20080115
  Serious: No
  Sender: FDA-Public Use
  Company Number: A0608355A

PATIENT
  Sex: Male

DRUGS (3)
  1. AVANDIA [Suspect]
     Dosage: 4MG TWICE PER DAY
     Route: 048
     Dates: start: 20040101
  2. METFORMIN HCL [Suspect]
     Indication: DRUG USE FOR UNKNOWN INDICATION
     Route: 065
     Dates: start: 20060501
  3. GLYBURIDE [Concomitant]

REACTIONS (1)
  - ABDOMINAL PAIN UPPER [None]
